FAERS Safety Report 12157615 (Version 1)
Quarter: 2016Q1

REPORT INFORMATION
  Report Type: Spontaneous
  Country: US (occurrence: None)
  Receive Date: 20160307
  Receipt Date: 20160307
  Transmission Date: 20160526
  Serious: Yes (Life-Threatening)
  Sender: FDA-Public Use
  Company Number: None

PATIENT
  Age: 40 Year
  Sex: Female
  Weight: 74.84 kg

DRUGS (5)
  1. HYDROCORTISONE 5 MG QUALITEST [Suspect]
     Active Substance: HYDROCORTISONE
     Indication: ADDISON^S DISEASE
     Route: 048
     Dates: start: 20160215, end: 20160304
  2. DHEA [Concomitant]
     Active Substance: PRASTERONE
  3. CALCIUM [Concomitant]
     Active Substance: CALCIUM
  4. VITAMIN D [Concomitant]
     Active Substance: CHOLECALCIFEROL
  5. BLOOD PRESSURE MONITOR [Concomitant]

REACTIONS (4)
  - Drug ineffective [None]
  - Product quality issue [None]
  - Adrenocortical insufficiency acute [None]
  - Product substitution issue [None]

NARRATIVE: CASE EVENT DATE: 20160304
